FAERS Safety Report 5080136-5 (Version None)
Quarter: 2006Q3

REPORT INFORMATION
  Report Type: 
  Country: None (occurrence: None)
  Receive Date: 20060810
  Receipt Date: 20060731
  Transmission Date: 20061208
  Serious: Yes (Hospitalization)
  Sender: FDA-Public Use
  Company Number: S06-USA-03017-01

PATIENT
  Age: 45 Year
  Sex: Female

DRUGS (2)
  1. LEXAPRO [Suspect]
     Indication: ANXIETY
     Dosage: 10 MG QD PO
     Route: 048
     Dates: start: 20030101, end: 20060101
  2. LEXAPRO [Suspect]
     Indication: ANXIETY
     Dates: start: 20060101, end: 20060101

REACTIONS (5)
  - APPENDICITIS PERFORATED [None]
  - HAEMATOMA INFECTION [None]
  - HAEMOGLOBIN DECREASED [None]
  - INCISIONAL HERNIA [None]
  - OPERATIVE HAEMORRHAGE [None]
